FAERS Safety Report 20960497 (Version 1)
Quarter: 2022Q2

REPORT INFORMATION
  Report Type: Spontaneous
  Country: US (occurrence: US)
  Receive Date: 20220615
  Receipt Date: 20220615
  Transmission Date: 20220721
  Serious: No
  Sender: FDA-Public Use
  Company Number: US-GILEAD-2022-0585902

PATIENT
  Age: 60 Year
  Sex: Female
  Weight: 63.5 kg

DRUGS (5)
  1. AMBRISENTAN [Suspect]
     Active Substance: AMBRISENTAN
     Indication: Pulmonary arterial hypertension
     Dosage: UNK
     Route: 065
  2. REMODULIN [Suspect]
     Active Substance: TREPROSTINIL
     Indication: Pulmonary arterial hypertension
     Dosage: 0.049 ?G/KG, CONTINUING
     Route: 058
     Dates: start: 20190514
  3. LECITHIN\POLOXAMER 407 [Suspect]
     Active Substance: LECITHIN\POLOXAMER 407
     Indication: Product used for unknown indication
     Dosage: UNK
     Route: 065
  4. ELIQUIS [Concomitant]
     Active Substance: APIXABAN
  5. TADALAFIL [Concomitant]
     Active Substance: TADALAFIL

REACTIONS (3)
  - Headache [Unknown]
  - Nausea [Unknown]
  - Drug hypersensitivity [Unknown]
